FAERS Safety Report 19745129 (Version 1)
Quarter: 2021Q3

REPORT INFORMATION
  Report Type: Spontaneous
  Country: US (occurrence: US)
  Receive Date: 20210824
  Receipt Date: 20210824
  Transmission Date: 20211014
  Serious: Yes (Other)
  Sender: FDA-Public Use
  Company Number: None

PATIENT
  Age: 74 Year
  Sex: Male
  Weight: 56.7 kg

DRUGS (5)
  1. HEPARIN [Concomitant]
     Active Substance: HEPARIN SODIUM
     Dates: start: 20210822
  2. NICOTINE. [Concomitant]
     Active Substance: NICOTINE
     Dates: start: 20210823
  3. DEXAMETHASONE. [Concomitant]
     Active Substance: DEXAMETHASONE
     Dates: start: 20210822
  4. PROCHLORPERAZINE. [Concomitant]
     Active Substance: PROCHLORPERAZINE
     Dates: start: 20210823
  5. REMDESIVIR. [Suspect]
     Active Substance: REMDESIVIR
     Indication: COVID-19
     Route: 042
     Dates: start: 20210823, end: 20210824

REACTIONS (7)
  - Retching [None]
  - Bradycardia [None]
  - Electrocardiogram QT prolonged [None]
  - Blood pressure increased [None]
  - Presyncope [None]
  - Asthenia [None]
  - Infusion related reaction [None]

NARRATIVE: CASE EVENT DATE: 20210824
